FAERS Safety Report 18992409 (Version 1)
Quarter: 2021Q1

REPORT INFORMATION
  Report Type: Report from Study
  Country: IL (occurrence: IL)
  Receive Date: 20210310
  Receipt Date: 20210310
  Transmission Date: 20210420
  Serious: Yes (Other)
  Sender: FDA-Public Use
  Company Number: IL-IPSEN BIOPHARMACEUTICALS, INC.-2021-06136

PATIENT
  Age: 60 Year
  Sex: Female

DRUGS (1)
  1. SOMATULINE AUTOGEL [Suspect]
     Active Substance: LANREOTIDE ACETATE
     Indication: NEUROENDOCRINE TUMOUR
     Dosage: EVERY 28 DAYS
     Route: 065
     Dates: start: 20180905, end: 202008

REACTIONS (5)
  - Off label use [Unknown]
  - Jaundice [Recovered/Resolved]
  - Gastric polyps [Recovered/Resolved]
  - Product dose omission issue [Unknown]
  - Cholelithiasis obstructive [Recovered/Resolved]

NARRATIVE: CASE EVENT DATE: 20180905
